FAERS Safety Report 7997222-X (Version None)
Quarter: 2011Q4

REPORT INFORMATION
  Report Type: 
  Country: None (occurrence: None)
  Receive Date: 20111221
  Receipt Date: 20111219
  Transmission Date: 20120403
  Serious: Yes (Other)
  Sender: FDA-Public Use
  Company Number: US-JNJFOC-20071108374

PATIENT
  Sex: Male
  Weight: 77.11 kg

DRUGS (2)
  1. SUDAFED 24 HOUR [Suspect]
     Route: 065
  2. SUDAFED 24 HOUR [Suspect]
     Indication: NASAL CONGESTION
     Route: 065
     Dates: start: 20071119, end: 20071120

REACTIONS (3)
  - DIZZINESS [None]
  - OVERDOSE [None]
  - ASTHENIA [None]
